FAERS Safety Report 21524020 (Version 1)
Quarter: 2022Q4

REPORT INFORMATION
  Report Type: Spontaneous
  Country: DK (occurrence: DK)
  Receive Date: 20221029
  Receipt Date: 20221029
  Transmission Date: 20230113
  Serious: Yes (Hospitalization, Disabling)
  Sender: FDA-Public Use
  Company Number: None

PATIENT
  Age: 21 Year
  Sex: Male

DRUGS (3)
  1. METHYLPHENIDATE [Suspect]
     Active Substance: METHYLPHENIDATE
     Indication: Attention deficit hyperactivity disorder
     Dosage: 40 MG
     Route: 048
     Dates: start: 20120604, end: 20200129
  2. ATOMOXETINE HYDROCHLORIDE [Suspect]
     Active Substance: ATOMOXETINE HYDROCHLORIDE
     Indication: Attention deficit hyperactivity disorder
     Dosage: 60 MG
     Route: 048
     Dates: start: 20140415, end: 20200129
  3. ELOCON [Concomitant]
     Active Substance: MOMETASONE FUROATE
     Indication: Eczema
     Dosage: AT MOST ONCE A DAY?STRENGTH: 0.1%
     Route: 003
     Dates: start: 20180612

REACTIONS (4)
  - Cerebral haemorrhage [Recovering/Resolving]
  - Asthenia [Recovered/Resolved]
  - Anisocoria [Recovered/Resolved]
  - Seizure [Recovered/Resolved]

NARRATIVE: CASE EVENT DATE: 20200121
